FAERS Safety Report 11616834 (Version 3)
Quarter: 2016Q3

REPORT INFORMATION
  Report Type: Spontaneous
  Country: US (occurrence: US)
  Receive Date: 20151009
  Receipt Date: 20160802
  Transmission Date: 20161109
  Serious: Yes (Hospitalization, Disabling, Other)
  Sender: FDA-Public Use
  Company Number: US-BAYER-2015-434824

PATIENT
  Age: 35 Year
  Sex: Male
  Weight: 61.68 kg

DRUGS (23)
  1. SALINE [Concomitant]
     Active Substance: SODIUM CHLORIDE
     Dosage: 9% 10 ML VIAL
  2. ALPHA LIPOIC ACID [Concomitant]
     Active Substance: .ALPHA.-LIPOIC ACID
     Dosage: 1200 MG, UNK
  3. L-ARGININE HCL [Concomitant]
     Dosage: 1000 MG, UNK
  4. MAGNESIUM MALATE [Concomitant]
     Dosage: 1000 MG, UNK
  5. AVELOX [Suspect]
     Active Substance: MOXIFLOXACIN HYDROCHLORIDE
     Indication: OROPHARYNGEAL PAIN
     Dosage: 400 MG, UNK
     Dates: start: 20081006, end: 20081117
  6. AVELOX [Suspect]
     Active Substance: MOXIFLOXACIN HYDROCHLORIDE
     Indication: DYSPHAGIA
  7. ACETYL L-CARNITINE [Concomitant]
     Active Substance: ACETYLCARNITINE
     Dosage: 4500 MG, UNK
  8. LEVAQUIN [Suspect]
     Active Substance: LEVOFLOXACIN
     Indication: LOWER RESPIRATORY TRACT INFECTION
     Dosage: 500 MG, UNK
     Dates: start: 20080925, end: 20081006
  9. HCG [Concomitant]
     Active Substance: GONADOTROPHIN, CHORIONIC
     Dosage: DAILY
  10. COQ10 [Concomitant]
     Active Substance: UBIDECARENONE
     Dosage: 800 MG, UNK
  11. VITAMIN B COMPLEX [Concomitant]
     Active Substance: CYANOCOBALAMIN\DEXPANTHENOL\NIACINAMIDE\PYRIDOXINE HYDROCHLORIDE\RIBOFLAVIN 5^-PHOSPHATE SODIUM\THIAMINE HYDROCHLORIDE\VITAMIN B COMPLEX
     Dosage: UNK
  12. L-GLUTAMINE [GLUTAMIC ACID] [Concomitant]
     Dosage: 4000 MG, UNK
  13. CREATINE [Concomitant]
     Active Substance: CREATINE
     Dosage: 10000 MG, UNK
  14. BCAA [Concomitant]
  15. VITAMIN B12 [Concomitant]
     Active Substance: CYANOCOBALAMIN
     Dosage: 5 MG/ML, 5 TIMES PER WEEK
  16. VITAMIN D3 [Concomitant]
     Active Substance: CHOLECALCIFEROL
     Dosage: 1000 MG, UNK
  17. VITAMIN E [Concomitant]
     Active Substance: .ALPHA.-TOCOPHEROL
     Dosage: 400 IU, UNK
  18. DOCOSAHEXANOIC ACID [Concomitant]
     Dosage: 25000 MG, UNK
  19. CIPRO [Suspect]
     Active Substance: CIPROFLOXACIN HYDROCHLORIDE
     Indication: OROPHARYNGEAL PAIN
     Dosage: UNK
     Dates: start: 20080924
  20. N-ACETYLCYSTEINE [Concomitant]
     Active Substance: ACETYLCYSTEINE
     Dosage: 6000 MG, UNK
  21. LEVAQUIN [Suspect]
     Active Substance: LEVOFLOXACIN
     Indication: LOWER RESPIRATORY TRACT INFECTION
     Dosage: 750 MG, UNK
     Dates: start: 20080915, end: 20080925
  22. CARNITOR [Concomitant]
     Active Substance: LEVOCARNITINE
     Dosage: DAILY
  23. GLUTATHIONE [Concomitant]
     Active Substance: GLUTATHIONE
     Dosage: 10 ML VIAL (200MG) INJECTED DAILY

REACTIONS (13)
  - Pain [None]
  - Skin injury [None]
  - Mental disorder [None]
  - Neuropathy peripheral [None]
  - Musculoskeletal injury [None]
  - Injury [None]
  - Nervous system disorder [None]
  - Musculoskeletal injury [None]
  - Anxiety [None]
  - Neuropathy peripheral [None]
  - Cardiovascular disorder [None]
  - Toxicity to various agents [None]
  - Emotional distress [None]

NARRATIVE: CASE EVENT DATE: 200903
